FAERS Safety Report 21873431 (Version 3)
Quarter: 2024Q2

REPORT INFORMATION
  Report Type: Spontaneous
  Country: FI (occurrence: FI)
  Receive Date: 20230117
  Receipt Date: 20240419
  Transmission Date: 20240715
  Serious: Yes (Other)
  Sender: FDA-Public Use
  Company Number: FI-INDIVIOR EUROPE LIMITED-INDV-137529-2023

PATIENT

DRUGS (1)
  1. SUBOXONE [Suspect]
     Active Substance: BUPRENORPHINE HYDROCHLORIDE\NALOXONE HYDROCHLORIDE
     Indication: Drug use disorder
     Dosage: 16-10 MG, QD
     Route: 064

REACTIONS (6)
  - Small for dates baby [Recovered/Resolved]
  - Head circumference abnormal [Unknown]
  - Drug withdrawal syndrome neonatal [Unknown]
  - Dermatitis atopic [Unknown]
  - Constipation [Unknown]
  - Foetal exposure during pregnancy [Recovered/Resolved]

NARRATIVE: CASE EVENT DATE: 20130101
